FAERS Safety Report 6501111-7 (Version None)
Quarter: 2009Q4

REPORT INFORMATION
  Report Type: 
  Country: None (occurrence: None)
  Receive Date: 20091216
  Receipt Date: 20090722
  Transmission Date: 20100525
  Serious: No
  Sender: FDA-Public Use
  Company Number: A0798206A

PATIENT
  Age: 78 Year
  Sex: Female

DRUGS (2)
  1. NICOTINE POLACRILEX [Suspect]
     Indication: SMOKING CESSATION THERAPY
     Dates: start: 20090608
  2. NICODERM CQ [Suspect]

REACTIONS (5)
  - ARTERIAL OCCLUSIVE DISEASE [None]
  - DIARRHOEA [None]
  - DRUG INEFFECTIVE [None]
  - HYPERTENSION [None]
  - NICOTINE DEPENDENCE [None]
